FAERS Safety Report 6540731-0 (Version None)
Quarter: 2010Q1

REPORT INFORMATION
  Report Type: 
  Country: None (occurrence: None)
  Receive Date: 20100118
  Receipt Date: 20100112
  Transmission Date: 20100710
  Serious: Yes (Hospitalization)
  Sender: FDA-Public Use
  Company Number: US-ELI_LILLY_AND_COMPANY-US200911007176

PATIENT
  Sex: Female

DRUGS (16)
  1. FORTEO [Suspect]
     Indication: OSTEOPOROSIS
     Dosage: 20 UG, DAILY (1/D)
     Dates: start: 20080901
  2. ANTIBIOTICS [Concomitant]
     Route: 042
     Dates: start: 20091101, end: 20091101
  3. ANTIBIOTICS [Concomitant]
     Route: 048
     Dates: start: 20091101
  4. VITAMIN D [Concomitant]
     Dosage: 1000 IU, DAILY (1/D)
  5. CALCIUM CITRATE [Concomitant]
     Dosage: UNK, 2/D
  6. SUDAFED 12 HOUR [Concomitant]
     Dosage: 30 MG, 2/D
  7. ATROVENT [Concomitant]
     Dosage: 2 D/F, 4/D
     Route: 045
  8. ASTELIN [Concomitant]
     Dosage: 2 D/F, 2/D
     Route: 045
  9. ALBUTEROL [Concomitant]
     Dosage: 2 D/F, 4/D
     Route: 055
  10. ALBUTEROL [Concomitant]
     Dosage: UNK, AS NEEDED
     Route: 055
  11. ALBUTEROL [Concomitant]
     Dosage: UNK, AS NEEDED
     Route: 050
  12. ATROVENT [Concomitant]
     Dosage: 2 D/F, 3/D
     Route: 055
  13. ATROVENT [Concomitant]
     Dosage: UNK, AS NEEDED
     Route: 055
  14. ATROVENT [Concomitant]
     Dosage: UNK, AS NEEDED
     Route: 050
  15. SYMBICORT [Concomitant]
     Dosage: 2 D/F, 2/D
  16. PULMICORT RESPULES [Concomitant]
     Dosage: UNK, AS NEEDED
     Route: 050

REACTIONS (8)
  - ASTHMA [None]
  - BRONCHIAL HYPERREACTIVITY [None]
  - COUGH [None]
  - DYSPNOEA [None]
  - RIB FRACTURE [None]
  - SINUSITIS [None]
  - STRESS FRACTURE [None]
  - UPPER RESPIRATORY TRACT INFECTION [None]
